FAERS Safety Report 13376072 (Version 1)
Quarter: 2017Q1

REPORT INFORMATION
  Report Type: Spontaneous
  Country: US (occurrence: US)
  Receive Date: 20170328
  Receipt Date: 20170328
  Transmission Date: 20170429
  Serious: No
  Sender: FDA-Public Use
  Company Number: US-ASTELLAS-2016US015342

PATIENT
  Age: 60 Year
  Sex: Female
  Weight: 59 kg

DRUGS (2)
  1. TACROLIMUS OINTMENT [Suspect]
     Active Substance: TACROLIMUS
     Indication: PRURITUS
     Dosage: THIN LAYER, SINGLE, OTHER
     Route: 061
     Dates: start: 20160412, end: 20160412
  2. TACROLIMUS OINTMENT [Suspect]
     Active Substance: TACROLIMUS
     Indication: DERMATITIS ALLERGIC

REACTIONS (2)
  - Application site pain [Recovered/Resolved]
  - Condition aggravated [Recovered/Resolved]

NARRATIVE: CASE EVENT DATE: 20160412
